FAERS Safety Report 5169987-6 (Version None)
Quarter: 2006Q4

REPORT INFORMATION
  Report Type: 
  Country: None (occurrence: None)
  Receive Date: 20061212
  Receipt Date: 20061003
  Transmission Date: 20070319
  Serious: Yes (Other)
  Sender: FDA-Public Use
  Company Number: BE-GLAXOSMITHKLINE-B0440780A

PATIENT
  Age: 70 Year
  Sex: Male
  Weight: 63 kg

DRUGS (1)
  1. ZYBAN [Suspect]
     Route: 048
     Dates: start: 20060815, end: 20060915

REACTIONS (7)
  - ANGINA PECTORIS [None]
  - ANOREXIA [None]
  - DIZZINESS [None]
  - HYPERHIDROSIS [None]
  - INSOMNIA [None]
  - NAUSEA [None]
  - TINNITUS [None]
